FAERS Safety Report 4950133-6 (Version None)
Quarter: 2006Q1

REPORT INFORMATION
  Report Type: 
  Country: None (occurrence: None)
  Receive Date: 20060316
  Receipt Date: 20060309
  Transmission Date: 20060701
  Serious: Yes (Hospitalization)
  Sender: FDA-Public Use
  Company Number: DE-2006-000078

PATIENT
  Age: 50 Year
  Sex: Female

DRUGS (1)
  1. BETAFERON(INTERFERON BETA-1B)BETAFERON(INTERFERON BETAT-1B) INJECTION, [Suspect]
     Indication: MULTIPLE SCLEROSIS
     Dosage: SUBCUTANEOUS
     Route: 058
     Dates: start: 20011120

REACTIONS (1)
  - NECROSIS [None]
